FAERS Safety Report 6762526-5 (Version None)
Quarter: 2010Q2

REPORT INFORMATION
  Report Type: 
  Country: None (occurrence: None)
  Receive Date: 20100609
  Receipt Date: 20100601
  Transmission Date: 20101027
  Serious: Yes (Hospitalization)
  Sender: FDA-Public Use
  Company Number: US-SANOFI-AVENTIS-2010SA023462

PATIENT
  Age: 65 Year
  Sex: Male

DRUGS (22)
  1. DOCETAXEL [Suspect]
     Indication: PROSTATE CANCER
     Route: 051
     Dates: start: 20100318, end: 20100318
  2. INVESTIGATIONAL DRUG [Suspect]
     Indication: PROSTATE CANCER
     Route: 048
     Dates: start: 20100318
  3. PREDNISONE [Suspect]
     Indication: PROSTATE CANCER
     Route: 048
     Dates: start: 20100318
  4. DEXAMETHASONE [Suspect]
     Indication: PREMEDICATION
     Route: 065
  5. ZESTRIL [Concomitant]
     Dates: start: 20090803, end: 20100408
  6. CARDURA /IRE/ [Concomitant]
  7. ALDACTONE [Concomitant]
  8. LASIX [Concomitant]
  9. MULTI-VITAMINS [Concomitant]
  10. AVODART [Concomitant]
  11. OXYCONTIN [Concomitant]
  12. AMBIEN [Concomitant]
  13. PROMETHAZINE [Concomitant]
  14. ASPIRIN [Concomitant]
  15. VICODIN [Concomitant]
  16. MAGNESIUM HYDROXIDE TAB [Concomitant]
  17. MUCINEX [Concomitant]
     Dates: start: 20100219
  18. EMLA [Concomitant]
     Dates: start: 20100304
  19. TAMSULOSIN HYDROCHLORIDE [Concomitant]
  20. ROBITUSSIN ^ROBINS^ [Concomitant]
     Dates: start: 20100219
  21. MINERALS NOS [Concomitant]
     Dates: start: 20100101
  22. LEVAQUIN [Concomitant]
     Dates: start: 20100219

REACTIONS (3)
  - CLAVICLE FRACTURE [None]
  - RENAL FAILURE [None]
  - TUMOUR LYSIS SYNDROME [None]
